FAERS Safety Report 23134275 (Version 1)
Quarter: 2023Q4

REPORT INFORMATION
  Report Type: Spontaneous
  Country: None (occurrence: US)
  Receive Date: 20231101
  Receipt Date: 20231101
  Transmission Date: 20240109
  Serious: Yes (Death)
  Sender: FDA-Public Use
  Company Number: US-Vero Biotech-2147665

PATIENT
  Age: 1 Month
  Sex: Male

DRUGS (2)
  1. GENOSYL [Suspect]
     Active Substance: NITRIC OXIDE
     Indication: Product used for unknown indication
     Route: 055
     Dates: start: 20231014, end: 20231015
  2. GENOSYL [Suspect]
     Active Substance: NITRIC OXIDE

REACTIONS (4)
  - Respiratory failure [Fatal]
  - Device user interface issue [None]
  - Septic shock [Fatal]
  - Hypotension [Fatal]

NARRATIVE: CASE EVENT DATE: 20231015
